FAERS Safety Report 24702691 (Version 2)
Quarter: 2025Q2

REPORT INFORMATION
  Report Type: Report from Study
  Country: IN (occurrence: None)
  Receive Date: 20241205
  Receipt Date: 20250612
  Transmission Date: 20250716
  Serious: Yes (Hospitalization, Other)
  Sender: INCYTE
  Company Number: IN-002147023-NVSC2024IN016689

PATIENT

DRUGS (6)
  1. RUXOLITINIB [Suspect]
     Active Substance: RUXOLITINIB
     Indication: Graft versus host disease
     Dosage: 10 MG, BID
  2. RUXOLITINIB [Suspect]
     Active Substance: RUXOLITINIB
     Dosage: 5 MG, BID
  3. RUXOLITINIB [Suspect]
     Active Substance: RUXOLITINIB
     Dosage: 5 MG, BID
  4. RUXOLITINIB [Suspect]
     Active Substance: RUXOLITINIB
     Dosage: 5 MG, QD
  5. RUXOLITINIB [Suspect]
     Active Substance: RUXOLITINIB
     Dosage: 5 MG, BID
  6. CALCIUM [Concomitant]
     Active Substance: CALCIUM
     Indication: Product used for unknown indication
     Route: 065

REACTIONS (28)
  - Small airways disease [Recovered/Resolved]
  - Cytomegalovirus infection [Recovered/Resolved]
  - Burning sensation [Recovered/Resolved]
  - Full blood count abnormal [Recovered/Resolved]
  - Bronchiectasis [Recovered/Resolved]
  - Crepitations [Recovered/Resolved]
  - Dry eye [Unknown]
  - Gamma-glutamyltransferase increased [Recovering/Resolving]
  - Glaucoma [Unknown]
  - Pruritus [Recovered/Resolved]
  - Hypoxia [Recovering/Resolving]
  - Liver function test abnormal [Unknown]
  - Dizziness [Recovered/Resolved]
  - Liver disorder [Unknown]
  - Ageusia [Recovered/Resolved]
  - Oral disorder [Unknown]
  - Mouth ulceration [Recovered/Resolved]
  - Pulmonary function test abnormal [Unknown]
  - Pneumonia [Recovered/Resolved]
  - Muscular weakness [Recovered/Resolved]
  - Pseudomonas infection [Unknown]
  - Serratia infection [Unknown]
  - Skin disorder [Unknown]
  - Kidney small [Recovered/Resolved]
  - Staphylococcal infection [Unknown]
  - Blood urea abnormal [Unknown]
  - Vomiting [Recovered/Resolved]
  - Hypoxia [Recovered/Resolved]
